FAERS Safety Report 13182290 (Version 7)
Quarter: 2017Q1

REPORT INFORMATION
  Report Type: Report from Study
  Country: MX (occurrence: MX)
  Receive Date: 20170203
  Receipt Date: 20170330
  Transmission Date: 20170428
  Serious: Yes (Other)
  Sender: FDA-Public Use
  Company Number: PHHY2017MX015368

PATIENT
  Sex: Female

DRUGS (5)
  1. CLONAZEPAM. [Concomitant]
     Active Substance: CLONAZEPAM
     Indication: PRODUCT USED FOR UNKNOWN INDICATION
     Route: 065
  2. STALEVO [Suspect]
     Active Substance: CARBIDOPA\ENTACAPONE\LEVODOPA
     Indication: PARKINSON^S DISEASE
     Dosage: 2 DF (CARBIDOPA 25 MG/ ENTACAPONE 200 MG/ LEVODOPA 100 MG), QD (1 AND HALF MONTH AGO)
     Route: 065
  3. FLUOXETINE [Concomitant]
     Active Substance: FLUOXETINE HYDROCHLORIDE
     Indication: PRODUCT USED FOR UNKNOWN INDICATION
     Route: 065
  4. PRAMIPEXOLE. [Concomitant]
     Active Substance: PRAMIPEXOLE
     Indication: PRODUCT USED FOR UNKNOWN INDICATION
     Route: 065
  5. STALEVO [Suspect]
     Active Substance: CARBIDOPA\ENTACAPONE\LEVODOPA
     Dosage: 1 DF (CARBIDOPA 25 MG/ ENTACAPONE 200 MG/ LEVODOPA 100 MG), QD (1 AND HALF MONTH AGO)
     Route: 065

REACTIONS (12)
  - Hallucination, visual [Recovering/Resolving]
  - Delirium [Unknown]
  - Confusional state [Unknown]
  - Insomnia [Recovering/Resolving]
  - Pain in extremity [Unknown]
  - Weight decreased [Unknown]
  - Gait disturbance [Unknown]
  - Fall [Unknown]
  - Limb injury [Unknown]
  - Abnormal behaviour [Unknown]
  - Muscular weakness [Unknown]
  - Irritability [Unknown]
